FAERS Safety Report 7622178-9 (Version None)
Quarter: 2011Q3

REPORT INFORMATION
  Report Type: 
  Country: None (occurrence: None)
  Receive Date: 20110720
  Receipt Date: 20110527
  Transmission Date: 20111222
  Serious: Yes (Other)
  Sender: FDA-Public Use
  Company Number: US-BAYER-201013588NA

PATIENT
  Age: 19 Year
  Sex: Female
  Weight: 77.098 kg

DRUGS (5)
  1. YAZ [Suspect]
     Indication: CONTRACEPTION
     Dosage: UNK UNK, QD
     Route: 048
     Dates: start: 20070801, end: 20080601
  2. APRI [Concomitant]
     Indication: CONTRACEPTION
     Dosage: UNK
  3. YAZ [Suspect]
     Dosage: UNK
     Dates: start: 20081001, end: 20090501
  4. ETHINYLESTRAD W/FERROUS FUM/NORETHISTER ACET [Concomitant]
  5. IBUPROFEN (ADVIL) [Concomitant]

REACTIONS (3)
  - ORGAN FAILURE [None]
  - GALLBLADDER NON-FUNCTIONING [None]
  - CHOLECYSTITIS CHRONIC [None]
